FAERS Safety Report 5650675-4 (Version None)
Quarter: 2008Q1

REPORT INFORMATION
  Report Type: 
  Country: None (occurrence: None)
  Receive Date: 20080303
  Receipt Date: 20080215
  Transmission Date: 20080703
  Serious: Yes (Hospitalization, Other)
  Sender: FDA-Public Use
  Company Number: 2007EU002729

PATIENT
  Sex: Female

DRUGS (5)
  1. PROGRAF [Suspect]
     Indication: RENAL TRANSPLANT
     Dosage: 7 MG, D, ORAL
     Route: 048
  2. AZATHIOPRINE SODIUM [Suspect]
     Indication: RENAL TRANSPLANT
     Dosage: D
  3. ASPEGIC 1000 [Suspect]
     Dosage: D
  4. PREDNISOLONE [Suspect]
     Indication: RENAL TRANSPLANT
     Dosage: 1 DF, D, ORAL
     Route: 048
  5. SPECIAFOLDINE (FOLIC ACID) [Concomitant]

REACTIONS (12)
  - CONGENITAL BLADDER ANOMALY [None]
  - CONGENITAL NOSE MALFORMATION [None]
  - DRUG EXPOSURE DURING PREGNANCY [None]
  - EAR MALFORMATION [None]
  - ENDOMETRITIS DECIDUAL [None]
  - OLIGOHYDRAMNIOS [None]
  - PLACENTAL DISORDER [None]
  - PREGNANCY [None]
  - RENAL HYPOPLASIA [None]
  - RETROGNATHIA [None]
  - URETHRAL VALVES [None]
  - URINARY TRACT MALFORMATION [None]
